FAERS Safety Report 11988412 (Version 3)
Quarter: 2016Q1

REPORT INFORMATION
  Report Type: Spontaneous
  Country: BR (occurrence: BR)
  Receive Date: 20160202
  Receipt Date: 20160229
  Transmission Date: 20160526
  Serious: Yes (Other)
  Sender: FDA-Public Use
  Company Number: BR-JNJFOC-20160124265

PATIENT
  Age: 25 Year
  Sex: Female
  Weight: 75 kg

DRUGS (5)
  1. CLOPIDOGREL [Concomitant]
     Active Substance: CLOPIDOGREL BISULFATE
     Route: 065
  2. DUROGESIC D-TRANS [Suspect]
     Active Substance: FENTANYL
     Indication: BONE PAIN
     Route: 062
     Dates: start: 20160117
  3. DIMORF [Concomitant]
     Active Substance: MORPHINE SULFATE
     Indication: BONE PAIN
     Route: 065
  4. CONCARDIO [Concomitant]
     Active Substance: BISOPROLOL FUMARATE
     Route: 065
  5. CLEXANE [Concomitant]
     Active Substance: ENOXAPARIN SODIUM
     Route: 065

REACTIONS (6)
  - Spinal decompression [Unknown]
  - Medication error [Unknown]
  - Product quality issue [Unknown]
  - Drug ineffective [Unknown]
  - Pain [Unknown]
  - Catheter placement [Not Recovered/Not Resolved]

NARRATIVE: CASE EVENT DATE: 20160118
